FAERS Safety Report 5739333-5 (Version None)
Quarter: 2008Q2

REPORT INFORMATION
  Report Type: 
  Country: None (occurrence: None)
  Receive Date: 20080515
  Receipt Date: 20080508
  Transmission Date: 20081010
  Serious: Yes (Hospitalization)
  Sender: FDA-Public Use
  Company Number: ES-PFIZER INC-2008023604

PATIENT
  Age: 39 Year
  Sex: Male

DRUGS (3)
  1. TRANKIMAZIN [Suspect]
     Indication: ANXIETY
     Route: 048
     Dates: start: 20070507, end: 20070517
  2. LORAZEPAM [Suspect]
     Indication: ANXIETY
     Route: 048
     Dates: start: 20070507, end: 20070517
  3. VENLAFAXINE HCL [Concomitant]
     Route: 048
     Dates: start: 20070507, end: 20070517

REACTIONS (1)
  - HEPATITIS CHOLESTATIC [None]
